FAERS Safety Report 6085415-0 (Version None)
Quarter: 2009Q1

REPORT INFORMATION
  Report Type: 
  Country: None (occurrence: None)
  Receive Date: 20090220
  Receipt Date: 20090209
  Transmission Date: 20090719
  Serious: Yes (Hospitalization)
  Sender: FDA-Public Use
  Company Number: SE-PFIZER INC-2009168567

PATIENT

DRUGS (4)
  1. PHARMORUBICIN [Suspect]
     Indication: BREAST CANCER
     Dosage: 119 MG, CYCLIC
     Dates: start: 20030818, end: 20030929
  2. TAXOTERE [Suspect]
     Indication: BREAST CANCER
     Dosage: 100 MG, CYCLIC
     Dates: start: 20030616, end: 20030929
  3. FLUCONAZOLE [Concomitant]
     Dosage: 50 MG,  X 1
     Route: 048
     Dates: start: 20030915
  4. CIPROFLOXACIN [Concomitant]
     Dosage: 500 MG, 1 X 2
     Route: 048
     Dates: start: 20031004

REACTIONS (2)
  - FATIGUE [None]
  - NAUSEA [None]
